FAERS Safety Report 7292653-8 (Version None)
Quarter: 2011Q1

REPORT INFORMATION
  Report Type: 
  Country: None (occurrence: None)
  Receive Date: 20110203
  Receipt Date: 20110118
  Transmission Date: 20110831
  Serious: Yes (Death)
  Sender: FDA-Public Use
  Company Number: B0694898A

PATIENT
  Age: 16 Year
  Sex: Female

DRUGS (8)
  1. SALICYLATE (FORMULATION UNKNOWN) (GENERIC) (SALICYLATE) [Suspect]
     Dosage: ORAL
     Route: 048
  2. DEXTRO AMPHETAMINE SULFATE TAB [Suspect]
     Dosage: ORAL
     Route: 048
  3. METOPROLOL (FORMULATION UNKNOWN) (GENERIC) (METOPROLOL) [Suspect]
     Dosage: ORAL
     Route: 048
  4. QUETIAPINE FUMARATE [Suspect]
     Dosage: ORAL
     Route: 048
  5. AMLODIPINE (FORMULATION UNKNOWN) (GENERIC) (AMLODIPINE) [Suspect]
     Dosage: ORAL
     Route: 048
  6. AMPHETAMINE (FORMULATION UNKNOWN) (GENERIC) (AMPHETAMINE) [Suspect]
     Dosage: ORAL
     Route: 048
  7. LAMOTRIGINE [Suspect]
     Dosage: ORAL
     Route: 048
  8. BUPROPION HYDROCHLORIDE [Suspect]
     Dosage: ORAL
     Route: 048

REACTIONS (3)
  - COMPLETED SUICIDE [None]
  - TOXICITY TO VARIOUS AGENTS [None]
  - OVERDOSE [None]
